FAERS Safety Report 5919290-9 (Version None)
Quarter: 2008Q4

REPORT INFORMATION
  Report Type: 
  Country: None (occurrence: None)
  Receive Date: 20081015
  Receipt Date: 20081006
  Transmission Date: 20090506
  Serious: Yes (Other)
  Sender: FDA-Public Use
  Company Number: PHHY2008GB18414

PATIENT
  Sex: Female

DRUGS (3)
  1. CLOZARIL [Suspect]
     Indication: SCHIZOPHRENIA
     Dosage: 500 MG, DAILY
     Route: 048
     Dates: start: 20080808
  2. CLOZARIL [Suspect]
     Dosage: 450 MG
  3. CLOZARIL [Suspect]
     Dosage: 430 MG

REACTIONS (3)
  - DRUG INEFFECTIVE [None]
  - PSYCHOTIC DISORDER [None]
  - TACHYCARDIA [None]
